FAERS Safety Report 14836177 (Version 3)
Quarter: 2019Q3

REPORT INFORMATION
  Report Type: Spontaneous
  Country: US (occurrence: US)
  Receive Date: 20180502
  Receipt Date: 20190903
  Transmission Date: 20191004
  Serious: Yes (Other)
  Sender: FDA-Public Use
  Company Number: US-PFIZER INC-2018177203

PATIENT
  Age: 65 Year
  Sex: Female

DRUGS (2)
  1. BOSULIF [Suspect]
     Active Substance: BOSUTINIB MONOHYDRATE
     Dosage: 400 MG, UNK
     Dates: start: 201810
  2. BOSULIF [Suspect]
     Active Substance: BOSUTINIB MONOHYDRATE
     Indication: CHRONIC MYELOID LEUKAEMIA
     Dosage: 500 MG, 1X/DAY
     Route: 048
     Dates: start: 2018, end: 2018

REACTIONS (18)
  - Weight increased [Recovered/Resolved]
  - Hypersensitivity [Unknown]
  - Fluid retention [Unknown]
  - Nausea [Unknown]
  - Rib fracture [Unknown]
  - Diarrhoea [Unknown]
  - Constipation [Unknown]
  - Asthenia [Unknown]
  - Gait disturbance [Recovered/Resolved with Sequelae]
  - Nasopharyngitis [Unknown]
  - Fall [Unknown]
  - Vomiting [Unknown]
  - Alopecia [Unknown]
  - Pneumonia viral [Recovered/Resolved]
  - Dyspnoea [Recovered/Resolved]
  - Cataract [Not Recovered/Not Resolved]
  - Swelling [Recovered/Resolved with Sequelae]
  - Anosmia [Unknown]

NARRATIVE: CASE EVENT DATE: 201804
